FAERS Safety Report 11689463 (Version 4)
Quarter: 2016Q1

REPORT INFORMATION
  Report Type: Report from Study
  Country: DE (occurrence: DE)
  Receive Date: 20151102
  Receipt Date: 20160308
  Transmission Date: 20160525
  Serious: Yes (Hospitalization)
  Sender: FDA-Public Use
  Company Number: DE-BRISTOL-MYERS SQUIBB COMPANY-BMS-2015-074057

PATIENT
  Age: 53 Year
  Sex: Male
  Weight: 86.8 kg

DRUGS (5)
  1. NIVOLUMAB [Suspect]
     Active Substance: NIVOLUMAB
     Dosage: 258.9 MG, UNK
     Route: 065
     Dates: start: 20150623, end: 20150623
  2. METHYLPREDNISOLON                  /00049601/ [Concomitant]
     Active Substance: METHYLPREDNISOLONE
     Indication: PRODUCT USED FOR UNKNOWN INDICATION
     Dosage: 96 MG, UNK
     Route: 048
     Dates: start: 20150707, end: 20150712
  3. NIVOLUMAB [Suspect]
     Active Substance: NIVOLUMAB
     Dosage: 258 MG, UNK
     Route: 065
     Dates: start: 20150609, end: 20150609
  4. NIVOLUMAB [Suspect]
     Active Substance: NIVOLUMAB
     Indication: MALIGNANT MELANOMA
     Dosage: 258 MG, UNK
     Route: 065
     Dates: start: 20150513, end: 20150513
  5. NIVOLUMAB [Suspect]
     Active Substance: NIVOLUMAB
     Dosage: 258 MG, UNK
     Route: 065
     Dates: start: 20150526, end: 20150526

REACTIONS (1)
  - Fatigue [Recovered/Resolved]

NARRATIVE: CASE EVENT DATE: 20150708
